FAERS Safety Report 16334194 (Version 3)
Quarter: 2019Q2

REPORT INFORMATION
  Report Type: Spontaneous
  Country: US (occurrence: US)
  Receive Date: 20190520
  Receipt Date: 20190624
  Transmission Date: 20190711
  Serious: No
  Sender: FDA-Public Use
  Company Number: US-009507513-1905USA007971

PATIENT
  Age: 23 Year
  Sex: Female
  Weight: 152.38 kg

DRUGS (2)
  1. NEXPLANON [Suspect]
     Active Substance: ETONOGESTREL
     Dosage: 1 ROD EVERY 3 YEARS, LEFT ARM
     Route: 059
     Dates: start: 20190515, end: 20190515
  2. NEXPLANON [Suspect]
     Active Substance: ETONOGESTREL
     Indication: CONTRACEPTION
     Dosage: 1 ROD, UNK
     Route: 059
     Dates: end: 20190412

REACTIONS (7)
  - Product quality issue [Unknown]
  - Device expulsion [Recovered/Resolved]
  - Complication of device removal [Recovered/Resolved]
  - Implant site fibrosis [Unknown]
  - Device difficult to use [Recovered/Resolved]
  - Complication of device insertion [Unknown]
  - Wound [Unknown]

NARRATIVE: CASE EVENT DATE: 20190412
